FAERS Safety Report 11288628 (Version 4)
Quarter: 2018Q2

REPORT INFORMATION
  Report Type: Spontaneous
  Country: US (occurrence: US)
  Receive Date: 20150721
  Receipt Date: 20180514
  Transmission Date: 20180711
  Serious: No
  Sender: FDA-Public Use
  Company Number: US-ASTRAZENECA-2015SE68374

PATIENT
  Age: 775 Month
  Sex: Female
  Weight: 61.2 kg

DRUGS (4)
  1. DULERA WITH FOMOTEROL [Concomitant]
     Indication: OBSTRUCTIVE AIRWAYS DISORDER
     Route: 055
  2. TUDORZA PRESSAIR [Suspect]
     Active Substance: ACLIDINIUM BROMIDE
     Indication: CHRONIC OBSTRUCTIVE PULMONARY DISEASE
     Dosage: ONE PUFF TWO TIMES A DAY
     Route: 055
     Dates: start: 2013
  3. TUDORZA PRESSAIR [Suspect]
     Active Substance: ACLIDINIUM BROMIDE
     Indication: CHRONIC OBSTRUCTIVE PULMONARY DISEASE
     Dosage: ONE PUFF TWO TIMES A DAY
     Route: 055
     Dates: start: 20171006
  4. DALIRESP [Suspect]
     Active Substance: ROFLUMILAST
     Indication: CHRONIC OBSTRUCTIVE PULMONARY DISEASE
     Route: 048
     Dates: end: 201505

REACTIONS (11)
  - Back pain [Unknown]
  - Chronic obstructive pulmonary disease [Unknown]
  - Drug dose omission [Unknown]
  - Frustration tolerance decreased [Unknown]
  - Off label use [Not Recovered/Not Resolved]
  - Dyspnoea [Unknown]
  - Device malfunction [Unknown]
  - Incorrect dose administered [Unknown]
  - Intentional product misuse [Unknown]
  - Blood pressure increased [Unknown]
  - Device issue [Unknown]

NARRATIVE: CASE EVENT DATE: 201505
